FAERS Safety Report 14175975 (Version 6)
Quarter: 2019Q2

REPORT INFORMATION
  Report Type: Spontaneous
  Country: US (occurrence: US)
  Receive Date: 20171109
  Receipt Date: 20190509
  Transmission Date: 20190711
  Serious: No
  Sender: FDA-Public Use
  Company Number: US-LEXICON PHARMACEUTICALS, INC-17-1606-01000

PATIENT
  Sex: Male

DRUGS (19)
  1. TELOTRISTAT ETHYL [Suspect]
     Active Substance: TELOTRISTAT ETHYL
     Indication: CARCINOID TUMOUR
     Route: 048
     Dates: start: 20170422
  2. MEGACE ORAL SUS [Concomitant]
  3. OMEGA3 [Concomitant]
  4. SANDOSTATIN [Concomitant]
     Active Substance: OCTREOTIDE ACETATE
  5. AFINITOR [Concomitant]
     Active Substance: EVEROLIMUS
     Route: 048
     Dates: start: 201710
  6. LOPERAMIDE [Concomitant]
     Active Substance: LOPERAMIDE
  7. FIBER [Concomitant]
     Active Substance: PSYLLIUM HUSK
  8. BELLADONNA-OPIUM [Concomitant]
  9. QUESTRAN [Concomitant]
     Active Substance: CHOLESTYRAMINE
  10. ZOFRAN [Concomitant]
     Active Substance: ONDANSETRON HYDROCHLORIDE
  11. DIPHENOXYLATE-ATROPINE [Concomitant]
     Active Substance: ATROPINE\DIPHENOXYLATE
  12. CREON [Concomitant]
     Active Substance: PANCRELIPASE AMYLASE\PANCRELIPASE LIPASE\PANCRELIPASE PROTEASE
  13. TYLENOL [Concomitant]
     Active Substance: ACETAMINOPHEN
  14. MELATONIN [Concomitant]
     Active Substance: MELATONIN
  15. ROXICODONE [Concomitant]
     Active Substance: OXYCODONE HYDROCHLORIDE
  16. METAMUCIL [Concomitant]
     Active Substance: PLANTAGO SEED
  17. MULTIVITAMIN [Concomitant]
     Active Substance: VITAMINS
  18. K-PHOS [Concomitant]
     Active Substance: POTASSIUM PHOSPHATE, MONOBASIC
  19. SIMETHICONE (DIMETHICONE) [Concomitant]
     Active Substance: DIMETHICONE

REACTIONS (1)
  - Diarrhoea [Not Recovered/Not Resolved]

NARRATIVE: CASE EVENT DATE: 2017
